FAERS Safety Report 10313420 (Version 2)
Quarter: 2014Q3

REPORT INFORMATION
  Report Type: Not Available
  Country: US (occurrence: US)
  Receive Date: 20140718
  Receipt Date: 20140718
  Transmission Date: 20150326
  Serious: No
  Sender: FDA-Public Use
  Company Number: US-LUPIN PHARMACEUTICALS INC.-E2B_00002081

PATIENT
  Age: 48 Year
  Sex: Male
  Weight: 93.52 kg

DRUGS (3)
  1. QUETIAPINE FUMARATE TABLETS 100 MG [Suspect]
     Active Substance: QUETIAPINE FUMARATE
     Indication: MENTAL DISORDER
     Dates: start: 20140515, end: 20140522
  2. QUETIAPINE FUMARATE TABLETS 100 MG [Suspect]
     Active Substance: QUETIAPINE FUMARATE
     Dates: start: 20140524
  3. QUETIAPINE FUMARATE TABLETS 100 MG [Suspect]
     Active Substance: QUETIAPINE FUMARATE
     Dates: start: 20140523, end: 20140523

REACTIONS (13)
  - Ocular hyperaemia [Recovered/Resolved]
  - Somnolence [Recovered/Resolved]
  - Increased viscosity of nasal secretion [Recovered/Resolved]
  - Cough [Recovered/Resolved]
  - Vision blurred [Recovered/Resolved]
  - Hallucination, visual [Recovered/Resolved]
  - Dysphagia [Recovered/Resolved]
  - Retching [Recovered/Resolved]
  - Eye discharge [Recovered/Resolved]
  - Hallucination [Recovered/Resolved]
  - Sluggishness [Recovered/Resolved]
  - Respiratory tract congestion [Recovered/Resolved]
  - Oropharyngeal pain [Recovered/Resolved]

NARRATIVE: CASE EVENT DATE: 20140524
